FAERS Safety Report 8503863-3 (Version None)
Quarter: 2012Q3

REPORT INFORMATION
  Report Type: 
  Country: None (occurrence: None)
  Receive Date: 20120711
  Receipt Date: 20120629
  Transmission Date: 20120928
  Serious: Yes (Life-Threatening, Other)
  Sender: FDA-Public Use
  Company Number: JP-BRISTOL-MYERS SQUIBB COMPANY-16534323

PATIENT
  Age: 70 Year
  Sex: Male

DRUGS (11)
  1. AMLODIPINE [Concomitant]
     Dates: start: 20080101
  2. METFORMIN HCL [Suspect]
     Indication: DIABETES MELLITUS
     Dosage: 1000MG 31MAR-03APR12(3D),250MG,2 IN 1 D (1MAY08-30MAR12)
     Route: 048
     Dates: start: 20080501, end: 20120403
  3. SITAGLIPTIN PHOSPHATE [Suspect]
     Indication: DIABETES MELLITUS
     Route: 048
     Dates: start: 20120331, end: 20120403
  4. ALDACTONE [Concomitant]
     Dates: start: 19841101
  5. TENORMIN [Concomitant]
     Dates: start: 19841101
  6. TRICHLORMETHIAZIDE [Concomitant]
     Dates: start: 19841101
  7. AMARYL [Suspect]
     Indication: DIABETES MELLITUS
     Dosage: 31MAR-03APR12,1MG/DAY
     Route: 048
     Dates: start: 20091207, end: 20120403
  8. ADALAT [Concomitant]
     Dates: start: 19841101
  9. ENALAPRIL MALEATE [Concomitant]
     Dates: start: 20080101
  10. METFORMIN HCL [Concomitant]
     Dates: start: 20080501
  11. GLYBURIDE [Concomitant]
     Dosage: 5MG, MAY2008-2009
     Dates: start: 19900201, end: 20090101

REACTIONS (4)
  - METABOLIC ACIDOSIS [None]
  - ALTERED STATE OF CONSCIOUSNESS [None]
  - BLOOD LACTIC ACID INCREASED [None]
  - HYPOGLYCAEMIA [None]
